FAERS Safety Report 17556139 (Version 1)
Quarter: 2020Q1

REPORT INFORMATION
  Report Type: Spontaneous
  Country: US (occurrence: US)
  Receive Date: 20200318
  Receipt Date: 20200318
  Transmission Date: 20200409
  Serious: No
  Sender: FDA-Public Use
  Company Number: US-THERAPEUTICSMD-2019TMD05385

PATIENT
  Sex: Female

DRUGS (4)
  1. IMVEXXY [Suspect]
     Active Substance: ESTRADIOL
     Indication: VAGINAL DISCHARGE
  2. SOLOSEC [Concomitant]
     Active Substance: SECNIDAZOLE
     Dosage: MULTIPLE TIMES OVER THE 9 MONTH PERIOD
     Dates: start: 2019
  3. IMVEXXY [Suspect]
     Active Substance: ESTRADIOL
     Indication: OESTROGEN THERAPY
     Dosage: UNK
     Dates: start: 201905, end: 2019
  4. FLAGYL [Concomitant]
     Active Substance: METRONIDAZOLE\METRONIDAZOLE HYDROCHLORIDE
     Dosage: MULTIPLE TIMES OVER THE 9 MONTH PERIOD
     Dates: start: 2019

REACTIONS (2)
  - Drug ineffective for unapproved indication [Recovered/Resolved]
  - Excessive granulation tissue [Recovered/Resolved]

NARRATIVE: CASE EVENT DATE: 2019
